FAERS Safety Report 22200043 (Version 1)
Quarter: 2023Q2

REPORT INFORMATION
  Report Type: Spontaneous
  Country: US (occurrence: US)
  Receive Date: 20230412
  Receipt Date: 20230412
  Transmission Date: 20230721
  Serious: No
  Sender: FDA-Public Use
  Company Number: US-TEVA-2023-US-2874770

PATIENT
  Age: 39 Year
  Sex: Female

DRUGS (2)
  1. MODAFINIL [Interacting]
     Active Substance: MODAFINIL
     Indication: Bipolar disorder
     Route: 065
     Dates: end: 2023
  2. CAPLYTA [Interacting]
     Active Substance: LUMATEPERONE
     Indication: Bipolar II disorder
     Dosage: 42 MILLIGRAM DAILY;
     Route: 065
     Dates: start: 20221220

REACTIONS (3)
  - Serum serotonin decreased [Not Recovered/Not Resolved]
  - Electric shock sensation [Not Recovered/Not Resolved]
  - Labelled drug-drug interaction issue [Unknown]

NARRATIVE: CASE EVENT DATE: 20221201
